FAERS Safety Report 5797471-5 (Version None)
Quarter: 2008Q2

REPORT INFORMATION
  Report Type: 
  Country: None (occurrence: None)
  Receive Date: 20080630
  Receipt Date: 20080623
  Transmission Date: 20081010
  Serious: Yes (Other)
  Sender: FDA-Public Use
  Company Number: 2008US000666

PATIENT
  Sex: Male

DRUGS (1)
  1. MYCAMINE [Suspect]
     Indication: DRUG USE FOR UNKNOWN INDICATION
     Dosage: IV NOS
     Route: 042

REACTIONS (4)
  - EXTRAVASATION [None]
  - PRESCRIPTION FORM TAMPERING [None]
  - SKIN NECROSIS [None]
  - WRONG DRUG ADMINISTERED [None]
